FAERS Safety Report 16349517 (Version 1)
Quarter: 2019Q2

REPORT INFORMATION
  Report Type: Spontaneous
  Country: US (occurrence: US)
  Receive Date: 20190523
  Receipt Date: 20190523
  Transmission Date: 20190711
  Serious: No
  Sender: FDA-Public Use
  Company Number: US-CASPER PHARMA LLC-2018CAS000347

PATIENT
  Sex: Male

DRUGS (1)
  1. AQUASOL A [Suspect]
     Active Substance: VITAMIN A PALMITATE
     Dosage: UNK, LITTLE BY LITTLE SO THE WHOLE DOSE FINISHES UP ONLY IN A WEEK
     Route: 051

REACTIONS (1)
  - Multiple use of single-use product [Unknown]
